FAERS Safety Report 7050903-7 (Version None)
Quarter: 2010Q4

REPORT INFORMATION
  Report Type: 
  Country: None (occurrence: None)
  Receive Date: 20101018
  Receipt Date: 20101018
  Transmission Date: 20110411
  Serious: Yes (Other)
  Sender: FDA-Public Use
  Company Number: None

PATIENT
  Sex: Female
  Weight: 65.7716 kg

DRUGS (1)
  1. ADDERALL XR 20 [Suspect]
     Indication: ATTENTION DEFICIT/HYPERACTIVITY DISORDER
     Dosage: 20 MG DAILY PO
     Route: 048
     Dates: start: 20100830, end: 20100930

REACTIONS (4)
  - AGITATION [None]
  - ANXIETY [None]
  - DRUG DISPENSING ERROR [None]
  - PRODUCT SUBSTITUTION ISSUE [None]
